FAERS Safety Report 10991877 (Version 2)
Quarter: 2015Q3

REPORT INFORMATION
  Report Type: Report from Study
  Country: US (occurrence: US)
  Receive Date: 20150406
  Receipt Date: 20150812
  Transmission Date: 20151125
  Serious: Yes (Hospitalization)
  Sender: FDA-Public Use
  Company Number: US-GILEAD-2015-0147277

PATIENT
  Age: 9 Year
  Sex: Male

DRUGS (3)
  1. ADCIRCA [Concomitant]
     Active Substance: TADALAFIL
  2. AMBRISENTAN [Suspect]
     Active Substance: AMBRISENTAN
     Indication: PULMONARY HYPERTENSION
     Dosage: 5 MG, QD
     Route: 065
     Dates: start: 20120717
  3. AMBRISENTAN [Suspect]
     Active Substance: AMBRISENTAN
     Indication: BRONCHIAL HYPERREACTIVITY

REACTIONS (2)
  - Off label use [Not Recovered/Not Resolved]
  - Ear tube insertion [Unknown]

NARRATIVE: CASE EVENT DATE: 20120717
